FAERS Safety Report 14781519 (Version 1)
Quarter: 2018Q2

REPORT INFORMATION
  Report Type: Spontaneous
  Country: FR (occurrence: FR)
  Receive Date: 20180420
  Receipt Date: 20180420
  Transmission Date: 20180711
  Serious: Yes (Other)
  Sender: FDA-Public Use
  Company Number: FR-MERCK KGAA-2046104

PATIENT
  Age: 42 Year
  Sex: Female

DRUGS (1)
  1. NOVOTHYROX [Suspect]
     Active Substance: LEVOTHYROXINE SODIUM
     Indication: PRODUCT USED FOR UNKNOWN INDICATION
     Dates: start: 201705, end: 201708

REACTIONS (17)
  - Head injury [None]
  - Mean cell volume increased [None]
  - Impaired work ability [None]
  - Fatigue [None]
  - Palpitations [None]
  - Anger [None]
  - Loss of consciousness [None]
  - Hypotonia [None]
  - Blood thyroid stimulating hormone decreased [None]
  - Syncope [None]
  - Verbal abuse [None]
  - Vital capacity decreased [None]
  - Monocyte count increased [None]
  - Seizure [None]
  - Headache [None]
  - Myalgia [None]
  - Feeling abnormal [None]

NARRATIVE: CASE EVENT DATE: 201706
